FAERS Safety Report 14066351 (Version 1)
Quarter: 2017Q4

REPORT INFORMATION
  Report Type: Spontaneous
  Country: SE (occurrence: SE)
  Receive Date: 20171009
  Receipt Date: 20171009
  Transmission Date: 20180321
  Serious: Yes (Other)
  Sender: FDA-Public Use
  Company Number: SE-MYLANLABS-2017M1062028

PATIENT
  Age: 58 Year
  Sex: Female

DRUGS (13)
  1. PROPAVAN [Concomitant]
     Active Substance: PROPIOMAZINE
  2. KALCIPOS-D [Concomitant]
     Active Substance: CALCIUM CARBONATE\CHOLECALCIFEROL
  3. LITHIONIT [Interacting]
     Active Substance: LITHIUM SULFATE
     Indication: BIPOLAR DISORDER
     Dosage: 3+3,5 TABLETTER
     Dates: start: 20090914
  4. XALATAN [Concomitant]
     Active Substance: LATANOPROST
  5. INDERAL [Concomitant]
     Active Substance: PROPRANOLOL HYDROCHLORIDE
  6. AMLODIPINE [Concomitant]
     Active Substance: AMLODIPINE BESYLATE
  7. TAMOXIFEN MYLAN 20 MG TABLETTER [Suspect]
     Active Substance: TAMOXIFEN
     Indication: BREAST CANCER
     Route: 048
     Dates: start: 20151215
  8. HALDOL [Concomitant]
     Active Substance: HALOPERIDOL
  9. AKINETON [Concomitant]
     Active Substance: BIPERIDEN HYDROCHLORIDE
  10. CANODERM [Concomitant]
  11. ZOPICLONE [Concomitant]
     Active Substance: ZOPICLONE
  12. ZOLEDRONIC ACID [Concomitant]
     Active Substance: ZOLEDRONIC ACID
  13. OXASCAND [Concomitant]
     Active Substance: OXAZEPAM

REACTIONS (2)
  - Drug interaction [Recovered/Resolved]
  - Fatigue [Recovered/Resolved]

NARRATIVE: CASE EVENT DATE: 2016
